FAERS Safety Report 13048769 (Version 2)
Quarter: 2016Q4

REPORT INFORMATION
  Report Type: Spontaneous
  Country: GB (occurrence: GB)
  Receive Date: 20161221
  Receipt Date: 20161229
  Transmission Date: 20170207
  Serious: Yes (Hospitalization)
  Sender: FDA-Public Use
  Company Number: GB-BAXTER-2016BAX063209

PATIENT
  Sex: Male

DRUGS (6)
  1. DESFERRIOXAMINE [Suspect]
     Active Substance: DEFEROXAMINE MESYLATE
     Route: 058
     Dates: start: 20161201
  2. WATER FOR INJECTION [Suspect]
     Active Substance: WATER
     Indication: MEDICATION DILUTION
     Route: 058
  3. WATER FOR INJECTION [Suspect]
     Active Substance: WATER
     Route: 058
     Dates: start: 20161128
  4. DESFERRIOXAMINE [Suspect]
     Active Substance: DEFEROXAMINE MESYLATE
     Indication: PRODUCT USED FOR UNKNOWN INDICATION
     Route: 058
  5. DESFERRIOXAMINE [Suspect]
     Active Substance: DEFEROXAMINE MESYLATE
     Route: 058
     Dates: start: 20161128
  6. WATER FOR INJECTION [Suspect]
     Active Substance: WATER
     Route: 058
     Dates: start: 20161201

REACTIONS (2)
  - Incorrect drug administration rate [Unknown]
  - Lower respiratory tract infection [Unknown]
